FAERS Safety Report 9779412 (Version 2)
Quarter: 2014Q1

REPORT INFORMATION
  Report Type: Spontaneous
  Country: VE (occurrence: VE)
  Receive Date: 20131223
  Receipt Date: 20140109
  Transmission Date: 20141002
  Serious: Yes (Other)
  Sender: FDA-Public Use
  Company Number: VE-PFIZER INC-2013363959

PATIENT
  Age: 70 Year
  Sex: Female

DRUGS (3)
  1. LIPITOR [Suspect]
     Indication: HYPERCHOLESTEROLAEMIA
     Dosage: 20 MG, ONCE DAILY
     Route: 048
     Dates: start: 201309, end: 201310
  2. DILATREND [Concomitant]
     Indication: HYPERTENSION
     Dosage: 25 MG, ONCE DAILY
     Route: 048
  3. OMEPRAZOLE [Concomitant]
     Indication: PROPHYLAXIS
     Dosage: 40 MG, ONCE DAILY
     Route: 048

REACTIONS (3)
  - Fall [Recovered/Resolved]
  - Injury [Recovered/Resolved]
  - Musculoskeletal pain [Recovered/Resolved]
